FAERS Safety Report 8801011 (Version 2)
Quarter: 2012Q4

REPORT INFORMATION
  Report Type: 
  Country: US (occurrence: US)
  Receive Date: 20120921
  Receipt Date: 20121207
  Transmission Date: 20130627
  Serious: Yes (Other)
  Sender: FDA-Public Use
  Company Number: US-BAYER-2012-096263

PATIENT
  Age: 31 Year
  Sex: Female
  Weight: 68.48 kg

DRUGS (1)
  1. MIRENA [Suspect]
     Indication: CONTRACEPTION
     Dosage: 20 mcg/24hr, CONT
     Route: 015
     Dates: start: 20120514, end: 20120824

REACTIONS (3)
  - Device dislocation [None]
  - Post procedural haemorrhage [None]
  - Procedural pain [None]
